FAERS Safety Report 9721483 (Version 4)
Quarter: 2014Q1

REPORT INFORMATION
  Report Type: Spontaneous
  Country: US (occurrence: US)
  Receive Date: 20131130
  Receipt Date: 20140227
  Transmission Date: 20141002
  Serious: Yes (Other)
  Sender: FDA-Public Use
  Company Number: US-009507513-1311USA010035

PATIENT
  Age: 39 Year
  Sex: Female

DRUGS (3)
  1. IMPLANON [Suspect]
     Indication: CONTRACEPTION
     Dosage: 1 ROD EVERY 3 YEAR
     Route: 030
     Dates: start: 20101216
  2. IMPLANON [Suspect]
     Dosage: UNK
     Route: 059
     Dates: start: 20071204, end: 20101216
  3. WELLBUTRIN [Concomitant]

REACTIONS (4)
  - Device deployment issue [Unknown]
  - Medical device complication [Unknown]
  - Incorrect route of drug administration [Unknown]
  - Incorrect drug administration duration [Unknown]
